FAERS Safety Report 8834209 (Version 1)
Quarter: 2012Q4

REPORT INFORMATION
  Report Type: 
  Country: IN (occurrence: IN)
  Receive Date: 20121010
  Receipt Date: 20121010
  Transmission Date: 20130627
  Serious: Yes (Hospitalization)
  Sender: FDA-Public Use
  Company Number: IN-WATSON-2012-17359

PATIENT
  Age: 3 Year
  Sex: Male

DRUGS (1)
  1. SODIUM VALPROATE [Suspect]
     Indication: CONVULSION
     Dosage: 20 mg/kg, daily
     Route: 048

REACTIONS (3)
  - Hyperammonaemic encephalopathy [Recovered/Resolved]
  - Acute hepatic failure [Recovered/Resolved]
  - Toxicity to various agents [Recovered/Resolved]
